FAERS Safety Report 6551827-1 (Version None)
Quarter: 2010Q1

REPORT INFORMATION
  Report Type: 
  Country: None (occurrence: None)
  Receive Date: 20100126
  Receipt Date: 20100119
  Transmission Date: 20100710
  Serious: Yes (Disabling)
  Sender: FDA-Public Use
  Company Number: GXKR2009ES13093

PATIENT
  Sex: Female
  Weight: 50 kg

DRUGS (9)
  1. RIMSTAR (NGX) [Suspect]
     Indication: TUBERCULOSIS
     Dosage: 60 MG, QID (IN THE MORNING)
     Route: 048
     Dates: start: 20090923, end: 20091122
  2. RIFAMPIN AND ISONIAZID [Suspect]
     Indication: TUBERCULOSIS
     Dosage: 2 DF, QD (IN MORNING)
     Route: 048
     Dates: start: 20091123
  3. CALCIUM [Concomitant]
     Indication: CALCIUM DEFICIENCY
     Dosage: 1 DF, QD
     Dates: start: 20091123
  4. CALCIUM SANDOZ FORTE D [Concomitant]
     Indication: CALCIUM DEFICIENCY
     Dosage: 2 DF, QD
  5. EUTIROX [Concomitant]
     Indication: HYPOTHYROIDISM
     Dosage: 1 DF/DAY
  6. DEFLAZACORT [Concomitant]
  7. DACORTIN [Concomitant]
     Dosage: 1.5 DF, IN THE MORNING
  8. NEXIUM [Concomitant]
  9. NEOBRUFEN [Concomitant]
     Dosage: 3 DF, DAILY

REACTIONS (3)
  - DECREASED APPETITE [None]
  - MALAISE [None]
  - MUSCULOSKELETAL PAIN [None]
